FAERS Safety Report 10074919 (Version 2)
Quarter: 2015Q1

REPORT INFORMATION
  Report Type: Spontaneous
  Country: ES (occurrence: ES)
  Receive Date: 20140414
  Receipt Date: 20150122
  Transmission Date: 20150720
  Serious: Yes (Other)
  Sender: FDA-Public Use
  Company Number: ES-ROCHE-1376530

PATIENT
  Age: 48 Year
  Sex: Male

DRUGS (2)
  1. INTERFERON ALFA-2A [Suspect]
     Active Substance: INTERFERON ALFA-2A
     Dosage: 12 MONTHS
     Route: 065
     Dates: start: 200401
  2. INTERFERON ALFA-2A [Suspect]
     Active Substance: INTERFERON ALFA-2A
     Indication: HEPATITIS C
     Dosage: 3 MILLION
     Route: 065
     Dates: start: 200303, end: 200304

REACTIONS (4)
  - Haematuria [Unknown]
  - Transplant rejection [Unknown]
  - Graft complication [Unknown]
  - Pyrexia [Unknown]

NARRATIVE: CASE EVENT DATE: 200304
